FAERS Safety Report 17453767 (Version 1)
Quarter: 2020Q1

REPORT INFORMATION
  Report Type: Spontaneous
  Country: DE (occurrence: DE)
  Receive Date: 20200224
  Receipt Date: 20200224
  Transmission Date: 20200409
  Serious: Yes (Other)
  Sender: FDA-Public Use
  Company Number: DE-GILEAD-2020-0452279

PATIENT
  Age: 55 Year

DRUGS (1)
  1. YESCARTA [Suspect]
     Active Substance: AXICABTAGENE CILOLEUCEL
     Indication: PRODUCT USED FOR UNKNOWN INDICATION
     Dosage: UNK
     Route: 065
     Dates: start: 20190930, end: 20190930

REACTIONS (2)
  - Cytokine storm [Recovered/Resolved]
  - Bone marrow failure [Recovered/Resolved]

NARRATIVE: CASE EVENT DATE: 20191001
